FAERS Safety Report 19813323 (Version 2)
Quarter: 2021Q4

REPORT INFORMATION
  Report Type: Report from Study
  Country: DO (occurrence: DO)
  Receive Date: 20210910
  Receipt Date: 20211023
  Transmission Date: 20220303
  Serious: Yes (Other)
  Sender: FDA-Public Use
  Company Number: NVSC2021DO201429

PATIENT
  Sex: Male

DRUGS (2)
  1. SECUKINUMAB [Suspect]
     Active Substance: SECUKINUMAB
     Indication: Ankylosing spondylitis
     Dosage: 150 MG, QMO
     Route: 058
     Dates: start: 20210622
  2. METHOTREXATE [Suspect]
     Active Substance: METHOTREXATE
     Indication: Product used for unknown indication
     Dosage: 6 DF, QW
     Route: 065

REACTIONS (6)
  - Drug-induced liver injury [Unknown]
  - Pain [Unknown]
  - Arthralgia [Unknown]
  - Movement disorder [Unknown]
  - Bone pain [Unknown]
  - Musculoskeletal chest pain [Unknown]
